FAERS Safety Report 4612522-9 (Version None)
Quarter: 2005Q1

REPORT INFORMATION
  Report Type: 
  Country: None (occurrence: None)
  Receive Date: 20050316
  Receipt Date: 20050316
  Transmission Date: 20050727
  Serious: No
  Sender: FDA-Public Use
  Company Number: None

PATIENT
  Age: 45 Year
  Sex: Male
  Weight: 99.7913 kg

DRUGS (1)
  1. CLOZARIL [Suspect]
     Dosage: 2 AM / 5 PM TAKEN P.O.   DAILY GROUP/ 1X WK INDIV RESIDES RRP HOUSING
     Route: 048

REACTIONS (2)
  - BLOOD TEST ABNORMAL [None]
  - PHARMACEUTICAL PRODUCT COMPLAINT [None]
